FAERS Safety Report 12397845 (Version 1)
Quarter: 2016Q2

REPORT INFORMATION
  Report Type: Spontaneous
  Country: US (occurrence: US)
  Receive Date: 20160524
  Receipt Date: 20160524
  Transmission Date: 20160815
  Serious: Yes (Life-Threatening, Other)
  Sender: FDA-Public Use
  Company Number: US-APOTEX-2016AP008543

PATIENT
  Age: 48 Year
  Sex: Male

DRUGS (6)
  1. TRAZODONE HYDROCHLORIDE. [Suspect]
     Active Substance: TRAZODONE HYDROCHLORIDE
     Indication: INTENTIONAL PRODUCT MISUSE
     Dosage: UNK
     Route: 048
  2. CLONAZEPAM TABLETS USP [Suspect]
     Active Substance: CLONAZEPAM
     Indication: INTENTIONAL PRODUCT MISUSE
     Dosage: UNK, UNKNOWN
     Route: 048
  3. TRAZODONE HYDROCHLORIDE. [Suspect]
     Active Substance: TRAZODONE HYDROCHLORIDE
     Indication: MULTIPLE DRUG THERAPY
  4. METFORMIN HYDROCHLORIDE. [Suspect]
     Active Substance: METFORMIN HYDROCHLORIDE
     Indication: MULTIPLE DRUG THERAPY
  5. CLONAZEPAM TABLETS USP [Suspect]
     Active Substance: CLONAZEPAM
     Indication: MULTIPLE DRUG THERAPY
  6. METFORMIN HYDROCHLORIDE. [Suspect]
     Active Substance: METFORMIN HYDROCHLORIDE
     Indication: INTENTIONAL PRODUCT MISUSE
     Dosage: UNK UNK, UNKNOWN
     Route: 048

REACTIONS (13)
  - Acute kidney injury [Unknown]
  - Hypoventilation [Unknown]
  - Bradycardia [Unknown]
  - Acute respiratory distress syndrome [Unknown]
  - Multiple drug therapy [Unknown]
  - Coma [Unknown]
  - Haemolysis [Unknown]
  - Hypoglycaemia [Unknown]
  - Acidosis [Unknown]
  - Metabolic acidosis [Unknown]
  - Ventricular arrhythmia [Unknown]
  - Hypotension [Unknown]
  - Intentional product misuse [Unknown]
